FAERS Safety Report 21954189 (Version 1)
Quarter: 2023Q1

REPORT INFORMATION
  Report Type: Spontaneous
  Country: US (occurrence: US)
  Receive Date: 20230204
  Receipt Date: 20230204
  Transmission Date: 20230418
  Serious: No
  Sender: FDA-Public Use
  Company Number: US-ACORDA-ACO_171855_2022

PATIENT
  Sex: Male

DRUGS (1)
  1. DALFAMPRIDINE [Suspect]
     Active Substance: DALFAMPRIDINE
     Indication: Multiple sclerosis
     Dosage: 10 MILLIGRAM, BID
     Route: 048
     Dates: start: 20220221

REACTIONS (4)
  - Tremor [Not Recovered/Not Resolved]
  - Restless legs syndrome [Recovering/Resolving]
  - Intentional underdose [Unknown]
  - Insomnia [Recovering/Resolving]
